FAERS Safety Report 12778261 (Version 1)
Quarter: 2016Q3

REPORT INFORMATION
  Report Type: Report from Study
  Country: US (occurrence: US)
  Receive Date: 20160926
  Receipt Date: 20160926
  Transmission Date: 20161109
  Serious: No
  Sender: FDA-Public Use
  Company Number: US-009507513-1609USA008538

PATIENT
  Sex: Male

DRUGS (1)
  1. KEYTRUDA [Suspect]
     Active Substance: PEMBROLIZUMAB
     Indication: LEIOMYOSARCOMA METASTATIC
     Dosage: 175 MG, Q3W
     Route: 042
     Dates: start: 20160411, end: 20160825

REACTIONS (2)
  - Condition aggravated [Unknown]
  - Arthritis [Unknown]

NARRATIVE: CASE EVENT DATE: 2016
